FAERS Safety Report 9442098 (Version 1)
Quarter: 2013Q3

REPORT INFORMATION
  Report Type: Spontaneous
  Country: US (occurrence: None)
  Receive Date: 20130805
  Receipt Date: 20130805
  Transmission Date: 20140515
  Serious: Yes (Death)
  Sender: FDA-Public Use
  Company Number: None

PATIENT
  Age: 68 Year
  Sex: Female

DRUGS (2)
  1. EYLEA 2 MG REGENERON [Suspect]
     Indication: AGE-RELATED MACULAR DEGENERATION
     Dosage: 1  4-5 WEEKS  INTRAOCULAR?
     Route: 031
     Dates: start: 20120515, end: 20130715
  2. LUCENTIS [Suspect]
     Indication: AGE-RELATED MACULAR DEGENERATION
     Dosage: 1  EVERY 4 WEEKS  INTRAOCULAR
     Route: 031
     Dates: start: 20110826, end: 20130711

REACTIONS (1)
  - Death [None]
